APPROVED DRUG PRODUCT: VELOSEF '125'
Active Ingredient: CEPHRADINE
Strength: 125MG/5ML
Dosage Form/Route: FOR SUSPENSION;ORAL
Application: A061763 | Product #001
Applicant: APOTHECON INC DIV BRISTOL MYERS SQUIBB
Approved: Approved Prior to Jan 1, 1982 | RLD: No | RS: No | Type: DISCN